FAERS Safety Report 13691626 (Version 1)
Quarter: 2017Q2

REPORT INFORMATION
  Report Type: Spontaneous
  Country: US (occurrence: US)
  Receive Date: 20170626
  Receipt Date: 20170626
  Transmission Date: 20170830
  Serious: Yes (Other)
  Sender: FDA-Public Use
  Company Number: US-TAKEDA-2017TUS013616

PATIENT
  Sex: Female
  Weight: 79.37 kg

DRUGS (3)
  1. TRAMADOL. [Concomitant]
     Active Substance: TRAMADOL
     Indication: ARTHRITIS
     Dosage: UNK, QD
     Route: 048
     Dates: start: 2003
  2. DEXILANT [Suspect]
     Active Substance: DEXLANSOPRAZOLE
     Indication: OESOPHAGEAL ULCER
     Dosage: 60 MG, QD
     Route: 048
     Dates: end: 2016
  3. TOPAMAX [Concomitant]
     Active Substance: TOPIRAMATE
     Indication: MIGRAINE
     Dosage: UNK
     Route: 048
     Dates: start: 2003

REACTIONS (4)
  - Osteoporosis [Recovered/Resolved]
  - Incorrect drug administration duration [Unknown]
  - Polyp [Recovered/Resolved]
  - Gastrointestinal pain [Recovering/Resolving]
